FAERS Safety Report 22768361 (Version 4)
Quarter: 2023Q4

REPORT INFORMATION
  Report Type: Report from Study
  Country: MX (occurrence: MX)
  Receive Date: 20230731
  Receipt Date: 20231211
  Transmission Date: 20240110
  Serious: Yes (Hospitalization, Other)
  Sender: FDA-Public Use
  Company Number: MX-002147023-NVSC2023MX157827

PATIENT

DRUGS (1)
  1. RUXOLITINIB [Suspect]
     Active Substance: RUXOLITINIB
     Indication: Primary myelofibrosis
     Dosage: UNK
     Route: 048

REACTIONS (19)
  - Diarrhoea [Unknown]
  - Product availability issue [Unknown]
  - Gait disturbance [Unknown]
  - Discomfort [Not Recovered/Not Resolved]
  - Memory impairment [Unknown]
  - Depressed mood [Recovering/Resolving]
  - Illness [Unknown]
  - Weight decreased [Unknown]
  - Malaise [Unknown]
  - Dyspepsia [Unknown]
  - Increased appetite [Unknown]
  - Infarction [Unknown]
  - Haematological infection [Unknown]
  - Anaemia [Recovering/Resolving]
  - Pneumonia [Unknown]
  - Feeling abnormal [Not Recovered/Not Resolved]
  - Renal disorder [Unknown]
  - Cognitive disorder [Unknown]
  - Vomiting [Not Recovered/Not Resolved]
